FAERS Safety Report 10061188 (Version 1)
Quarter: 2014Q2

REPORT INFORMATION
  Report Type: Spontaneous
  Country: GB (occurrence: GB)
  Receive Date: 20140407
  Receipt Date: 20140407
  Transmission Date: 20141212
  Serious: Yes (Other)
  Sender: FDA-Public Use
  Company Number: GB-JNJFOC-20140318326

PATIENT
  Age: 40 Year
  Sex: Male

DRUGS (2)
  1. DAKTARIN [Suspect]
     Route: 061
  2. DAKTARIN [Suspect]
     Indication: TINEA PEDIS
     Route: 061
     Dates: start: 20140317, end: 20140318

REACTIONS (3)
  - Rash [Unknown]
  - Pharyngeal oedema [Unknown]
  - Paraesthesia oral [Unknown]
